FAERS Safety Report 5503121-5 (Version None)
Quarter: 2007Q4

REPORT INFORMATION
  Report Type: 
  Country: None (occurrence: None)
  Receive Date: 20071029
  Receipt Date: 20071029
  Transmission Date: 20080405
  Serious: Yes (Life-Threatening)
  Sender: FDA-Public Use
  Company Number: None

PATIENT
  Age: 26 Year
  Sex: Male

DRUGS (1)
  1. NITROGLYCERIN [Suspect]
     Indication: CHEST PAIN
     Dosage: .4MG  OTHER  SUBLINGUAL
     Route: 060
     Dates: start: 20070927, end: 20070927

REACTIONS (3)
  - HEADACHE [None]
  - RESPIRATORY ARREST [None]
  - SYNCOPE [None]
